FAERS Safety Report 23213472 (Version 1)
Quarter: 2023Q4

REPORT INFORMATION
  Report Type: Spontaneous
  Country: US (occurrence: US)
  Receive Date: 20231121
  Receipt Date: 20231121
  Transmission Date: 20240110
  Serious: No
  Sender: FDA-Public Use
  Company Number: US-FreseniusKabi-FK202318634

PATIENT

DRUGS (2)
  1. HEPARIN SODIUM\SODIUM CHLORIDE [Suspect]
     Active Substance: HEPARIN SODIUM\SODIUM CHLORIDE
     Indication: Anticoagulant therapy
     Dosage: DOSAGE: REPORTED AS A ?HIGH DOSE?; ?SPECIFIC DOSING ASKED BUT UNKNOWN
     Route: 042
  2. HEPARIN SODIUM\SODIUM CHLORIDE [Suspect]
     Active Substance: HEPARIN SODIUM\SODIUM CHLORIDE
     Dosage: DOSAGE: REPORTED AS A ?HIGH DOSE?; ?SPECIFIC DOSING ASKED BUT UNKNOWN
     Route: 042

REACTIONS (1)
  - Drug ineffective [Unknown]
